FAERS Safety Report 11567156 (Version 1)
Quarter: 2015Q3

REPORT INFORMATION
  Report Type: Spontaneous
  Country: US (occurrence: US)
  Receive Date: 20150916
  Receipt Date: 20150916
  Transmission Date: 20151125
  Serious: No
  Sender: FDA-Public Use
  Company Number: US-ELI_LILLY_AND_COMPANY-US200907001873

PATIENT
  Sex: Female

DRUGS (4)
  1. FORTEO [Suspect]
     Active Substance: TERIPARATIDE
     Indication: OSTEOPOROSIS
     Dosage: 20 UG, DAILY (1/D)
     Dates: start: 200904
  2. VITAMIN D [Concomitant]
     Active Substance: CHOLECALCIFEROL
  3. FORTEO [Suspect]
     Active Substance: TERIPARATIDE
  4. FORTEO [Suspect]
     Active Substance: TERIPARATIDE
     Dosage: 20 UG, DAILY (1/D)

REACTIONS (5)
  - Rash [Unknown]
  - Blood sodium increased [Recovered/Resolved]
  - Expired product administered [Unknown]
  - Nausea [Recovered/Resolved]
  - Pruritus generalised [Recovering/Resolving]

NARRATIVE: CASE EVENT DATE: 2009
